FAERS Safety Report 21197910 (Version 3)
Quarter: 2022Q3

REPORT INFORMATION
  Report Type: Spontaneous
  Country: US (occurrence: US)
  Receive Date: 20220810
  Receipt Date: 20220828
  Transmission Date: 20221027
  Serious: Yes (Other)
  Sender: FDA-Public Use
  Company Number: US-JNJFOC-20220805878

PATIENT
  Age: 33 Year
  Sex: Female

DRUGS (7)
  1. INVEGA SUSTENNA [Suspect]
     Active Substance: PALIPERIDONE PALMITATE
     Indication: Schizophrenia
     Route: 030
     Dates: start: 2019
  2. INVEGA SUSTENNA [Suspect]
     Active Substance: PALIPERIDONE PALMITATE
     Route: 030
  3. INVEGA SUSTENNA [Suspect]
     Active Substance: PALIPERIDONE PALMITATE
  4. RISPERIDONE [Concomitant]
     Active Substance: RISPERIDONE
  5. BENZTROPINE [Concomitant]
     Active Substance: BENZTROPINE
  6. HALOPERIDOL [Concomitant]
     Active Substance: HALOPERIDOL
  7. TEMAZEPAM [Concomitant]
     Active Substance: TEMAZEPAM

REACTIONS (4)
  - Hallucination, auditory [Unknown]
  - Anxiety [Unknown]
  - Restlessness [Unknown]
  - Derealisation [Unknown]

NARRATIVE: CASE EVENT DATE: 20220101
